FAERS Safety Report 15656341 (Version 4)
Quarter: 2019Q1

REPORT INFORMATION
  Report Type: Spontaneous
  Country: FI (occurrence: FI)
  Receive Date: 20181126
  Receipt Date: 20190118
  Transmission Date: 20190417
  Serious: Yes (Other)
  Sender: FDA-Public Use
  Company Number: FI-PFIZER INC-2018324151

PATIENT
  Age: 76 Year
  Sex: Female

DRUGS (21)
  1. CLOPIDOGREL [Suspect]
     Active Substance: CLOPIDOGREL BISULFATE
     Dosage: 75 MG, UNK
     Route: 048
     Dates: start: 20180110, end: 201803
  2. PRIMASPAN [Suspect]
     Active Substance: ASPIRIN
     Dosage: UNK
  3. BURANA [Suspect]
     Active Substance: IBUPROFEN
     Indication: MUSCULOSKELETAL PAIN
     Dosage: 800 MG, TID
     Route: 048
     Dates: start: 20161214
  4. ROSUVASTATIN ORION [Suspect]
     Active Substance: ROSUVASTATIN
     Indication: ANGIOPLASTY
     Dosage: 20 MG, UNK
     Route: 048
     Dates: start: 20180110, end: 201802
  5. DULOXETINE. [Suspect]
     Active Substance: DULOXETINE
     Dosage: UNK
     Route: 065
  6. CLOPIDOGREL [Suspect]
     Active Substance: CLOPIDOGREL BISULFATE
     Dosage: UNK UNK, QD
     Route: 048
     Dates: start: 20180110, end: 201802
  7. ZOLT [ZOLPIDEM TARTRATE] [Suspect]
     Active Substance: ZOLPIDEM\ZOLPIDEM TARTRATE
     Indication: ABDOMINAL DISCOMFORT
     Dosage: 30 MILLIGRAM
     Route: 048
  8. THYROXIN [Suspect]
     Active Substance: LEVOTHYROXINE
     Indication: MUSCULOSKELETAL PAIN
  9. SOMAC [Suspect]
     Active Substance: PANTOPRAZOLE SODIUM
     Indication: ABDOMINAL DISCOMFORT
     Dosage: UNK
     Route: 065
  10. CLOPIDOGREL [Suspect]
     Active Substance: CLOPIDOGREL BISULFATE
     Dosage: 75 MG, UNK
     Route: 048
     Dates: start: 20180110, end: 201804
  11. PRIMASPAN [Suspect]
     Active Substance: ASPIRIN
     Indication: CEREBRAL INFARCTION
     Dosage: 100 MG, BID
     Route: 048
  12. ROSUVASTATIN ORION [Suspect]
     Active Substance: ROSUVASTATIN
     Dosage: 20 MG, UNK
     Route: 065
     Dates: start: 201801, end: 201802
  13. CLOPIDOGREL [Suspect]
     Active Substance: CLOPIDOGREL BISULFATE
     Dosage: 75 MG, QD
     Route: 048
     Dates: start: 20180110, end: 201804
  14. THYROXIN [Suspect]
     Active Substance: LEVOTHYROXINE
     Indication: THYROID DISORDER
     Dosage: 25 UG, Q8HR
     Route: 048
     Dates: start: 20161214
  15. BUVENTOL EASYHALER [Suspect]
     Active Substance: ALBUTEROL SULFATE
     Indication: DYSPNOEA
     Dosage: INHALER
     Route: 065
  16. CLOPIDOGREL [Suspect]
     Active Substance: CLOPIDOGREL BISULFATE
     Dosage: UNK
     Route: 048
  17. PANADOL [Concomitant]
     Active Substance: ACETAMINOPHEN
     Dosage: UNK
     Route: 065
  18. ROSUVASTATIN ORION [Suspect]
     Active Substance: ROSUVASTATIN
     Dosage: 20 MG, UNK
     Route: 065
  19. CETIRIZINE HYDROCHLORIDE. [Suspect]
     Active Substance: CETIRIZINE HYDROCHLORIDE
     Dosage: UNK UNK, DAILY
     Route: 065
  20. CLOPIDOGREL [Suspect]
     Active Substance: CLOPIDOGREL BISULFATE
     Dosage: UNK UNK, QD
     Route: 048
     Dates: start: 20180110, end: 201802
  21. LANSOPRAZOLE. [Suspect]
     Active Substance: LANSOPRAZOLE
     Indication: GASTRIC DISORDER
     Dosage: 30 MG, UNK
     Route: 048

REACTIONS (46)
  - Palpitations [Not Recovered/Not Resolved]
  - Asthenia [Not Recovered/Not Resolved]
  - Angina pectoris [Unknown]
  - Movement disorder [Not Recovered/Not Resolved]
  - Gait inability [Not Recovered/Not Resolved]
  - Confusional state [Not Recovered/Not Resolved]
  - Hernia [Unknown]
  - Arthralgia [Not Recovered/Not Resolved]
  - Pain in extremity [Unknown]
  - Weight decreased [Unknown]
  - Headache [Not Recovered/Not Resolved]
  - Dyspnoea [Recovered/Resolved]
  - Haematoma [Not Recovered/Not Resolved]
  - Paraesthesia [Not Recovered/Not Resolved]
  - Facial spasm [Not Recovered/Not Resolved]
  - Scleral discolouration [Not Recovered/Not Resolved]
  - Muscular weakness [Unknown]
  - Abdominal distension [Unknown]
  - Rash macular [Not Recovered/Not Resolved]
  - Dyspnoea [Not Recovered/Not Resolved]
  - Condition aggravated [Unknown]
  - Rash papular [Not Recovered/Not Resolved]
  - Eye colour change [Not Recovered/Not Resolved]
  - Hypotension [Unknown]
  - Abdominal discomfort [Unknown]
  - Myalgia [Not Recovered/Not Resolved]
  - Malaise [Unknown]
  - Muscle strain [Unknown]
  - Drug ineffective [Unknown]
  - Nervous system disorder [Unknown]
  - Nervous system disorder [Unknown]
  - Nerve compression [Not Recovered/Not Resolved]
  - Acne [Not Recovered/Not Resolved]
  - Amnesia [Not Recovered/Not Resolved]
  - Muscle twitching [Not Recovered/Not Resolved]
  - Facial pain [Not Recovered/Not Resolved]
  - Inflammatory marker increased [Unknown]
  - Thyroid function test abnormal [Unknown]
  - Muscle spasms [Not Recovered/Not Resolved]
  - Diverticulitis [Unknown]
  - Loss of control of legs [Unknown]
  - Abdominal pain upper [Not Recovered/Not Resolved]
  - Vision blurred [Not Recovered/Not Resolved]
  - Nerve compression [Unknown]
  - Palmar erythema [Unknown]
  - Osteoarthritis [Not Recovered/Not Resolved]

NARRATIVE: CASE EVENT DATE: 2016
